FAERS Safety Report 8218861-7 (Version None)
Quarter: 2012Q1

REPORT INFORMATION
  Report Type: 
  Country: None (occurrence: None)
  Receive Date: 20120319
  Receipt Date: 20120315
  Transmission Date: 20120608
  Serious: Yes (Other)
  Sender: FDA-Public Use
  Company Number: PHEH2010US03876

PATIENT
  Sex: Male

DRUGS (52)
  1. AREDIA [Suspect]
     Indication: PROSTATE CANCER METASTATIC
     Dosage: 90 MG, MONTHLY
  2. ZOMETA [Suspect]
     Indication: METASTASES TO BONE
     Dosage: 4 MG, MONTHLY
     Dates: end: 20080528
  3. PROMETHAZINE [Concomitant]
  4. PRILOSEC [Concomitant]
  5. ALLEGRA [Concomitant]
  6. EFFEXOR [Concomitant]
  7. INDOCIN [Concomitant]
  8. SOMA [Concomitant]
  9. HYZAAR [Concomitant]
  10. CELEBREX [Concomitant]
     Dosage: 100 MG, UNK
  11. KANTREX [Concomitant]
  12. GENTAMICIN [Concomitant]
  13. KETOCONAZOLE [Concomitant]
  14. HYDROCORTISONE [Concomitant]
  15. MISOPROSTOL [Concomitant]
  16. METHADONE HCL [Concomitant]
  17. VANCOMYCIN [Concomitant]
  18. NEXIUM [Concomitant]
  19. CARVEDILOL [Concomitant]
  20. PROZAC [Concomitant]
     Dosage: 20 MG, UNK
  21. METHADONE HCL [Concomitant]
  22. PEPCID [Concomitant]
  23. PERCOCET [Concomitant]
  24. REGELAN [Concomitant]
  25. ZOMETA [Suspect]
     Indication: PROSTATE CANCER METASTATIC
  26. TEMAZEPAM [Concomitant]
  27. INDIGO CARMINE [Concomitant]
  28. LEXAPRO [Concomitant]
  29. FLUNISOLIDE [Concomitant]
  30. CHEMOTHERAPEUTICS [Concomitant]
  31. HYTRIN [Concomitant]
  32. WARFARIN SODIUM [Concomitant]
  33. CYTOTEC [Concomitant]
  34. CYMBALTA [Concomitant]
  35. SENOKOT [Concomitant]
  36. ESTRADIOL [Concomitant]
     Dosage: 0.8 MG, UNK
  37. PROSCAR [Concomitant]
     Dosage: 5 MG, UNK
  38. OXYCODONE HCL [Concomitant]
  39. ANCEF [Concomitant]
  40. NEOSPORIN [Concomitant]
  41. ZOCOR [Concomitant]
  42. VERSED [Concomitant]
  43. ZYVOX [Concomitant]
  44. CLONAZEPAM [Concomitant]
  45. BACITRACIN [Concomitant]
  46. MARCAINE [Concomitant]
  47. COUMADIN [Concomitant]
  48. MORPHINE [Concomitant]
  49. HEPARIN [Concomitant]
  50. ANTIVERT [Concomitant]
  51. SENNA [Concomitant]
  52. ZOFRAN [Concomitant]

REACTIONS (42)
  - DISABILITY [None]
  - ERYTHEMA [None]
  - CELLULITIS [None]
  - CEREBROVASCULAR ACCIDENT [None]
  - TRICUSPID VALVE INCOMPETENCE [None]
  - AMNESIA [None]
  - BONE LOSS [None]
  - TOOTHACHE [None]
  - ANXIETY [None]
  - SWELLING [None]
  - PAIN IN JAW [None]
  - HIP FRACTURE [None]
  - OSTEONECROSIS OF JAW [None]
  - PAIN [None]
  - DEFORMITY [None]
  - OSTEOMYELITIS [None]
  - VISUAL IMPAIRMENT [None]
  - DIVERTICULUM [None]
  - TOBACCO ABUSE [None]
  - SLEEP APNOEA SYNDROME [None]
  - OSTEOARTHRITIS [None]
  - ANHEDONIA [None]
  - CONFUSIONAL STATE [None]
  - PAIN IN EXTREMITY [None]
  - EXPOSED BONE IN JAW [None]
  - PATHOLOGICAL FRACTURE [None]
  - HAEMORRHAGIC ANAEMIA [None]
  - BACK PAIN [None]
  - ORAL INFECTION [None]
  - SPINAL CORD COMPRESSION [None]
  - NEUROPATHY PERIPHERAL [None]
  - NEURITIS [None]
  - CATARACT [None]
  - DYSPNOEA [None]
  - HYPERTENSION [None]
  - MITRAL VALVE INCOMPETENCE [None]
  - VENTRICULAR HYPERTROPHY [None]
  - OTITIS MEDIA [None]
  - DIZZINESS [None]
  - ROTATOR CUFF SYNDROME [None]
  - DENTAL CARIES [None]
  - ARTHRALGIA [None]
